FAERS Safety Report 6005562-9 (Version None)
Quarter: 2008Q4

REPORT INFORMATION
  Report Type: 
  Country: None (occurrence: None)
  Receive Date: 20081216
  Receipt Date: 20081216
  Transmission Date: 20090506
  Serious: Yes (Death)
  Sender: FDA-Public Use
  Company Number: None

PATIENT
  Age: 86 Year
  Sex: Female
  Weight: 120.3 kg

DRUGS (2)
  1. ULTRAVIST 370 [Suspect]
     Indication: ARTERIOGRAM CORONARY
     Dosage: 165 ML INTRA-ARTERIAL
     Route: 013
     Dates: start: 20080922, end: 20080922
  2. ULTRAVIST 370 [Suspect]
     Indication: CATHETERISATION CARDIAC
     Dosage: 165 ML INTRA-ARTERIAL
     Route: 013
     Dates: start: 20080922, end: 20080922

REACTIONS (12)
  - ACUTE PULMONARY OEDEMA [None]
  - ACUTE RESPIRATORY DISTRESS SYNDROME [None]
  - ASTHENIA [None]
  - CARDIAC STRESS TEST ABNORMAL [None]
  - CHOLELITHIASIS [None]
  - DEHYDRATION [None]
  - DYSPNOEA [None]
  - GALLBLADDER DISORDER [None]
  - HYPERHIDROSIS [None]
  - LUNG INFILTRATION [None]
  - SYNCOPE [None]
  - WEIGHT INCREASED [None]
